FAERS Safety Report 8604244-4 (Version None)
Quarter: 2012Q3

REPORT INFORMATION
  Report Type: 
  Country: None (occurrence: None)
  Receive Date: 20120820
  Receipt Date: 20120810
  Transmission Date: 20120928
  Serious: Yes (Hospitalization)
  Sender: FDA-Public Use
  Company Number: US-BAYER-201013332NA

PATIENT
  Age: 34 Year
  Sex: Female
  Weight: 109 kg

DRUGS (20)
  1. FLU VACCINATION [Concomitant]
     Dosage: UNK
     Dates: start: 20081101
  2. LANTUS [Concomitant]
     Indication: TYPE 2 DIABETES MELLITUS
  3. VICODIN [Concomitant]
  4. ZOLOFT [Concomitant]
     Route: 065
  5. MEDROL [Concomitant]
  6. YAZ [Suspect]
     Indication: ORAL CONTRACEPTION
  7. LISINOPRIL [Concomitant]
     Indication: HYPERTENSION
     Route: 065
  8. STEROIDS [Concomitant]
     Indication: ASTHMA
  9. VITAMIN B-12 [Concomitant]
     Dosage: 250 TO 500 MG DAILY
     Route: 048
     Dates: start: 20081208, end: 20091116
  10. ZITHROMAX [Concomitant]
  11. ALBUTEROL [Concomitant]
     Dosage: 2 PUFFS PRN
     Route: 045
  12. TYLENOL PM [Concomitant]
     Dosage: UNK UNK, HS
     Route: 048
  13. GLUCOPHAGE [Concomitant]
  14. YAZ [Suspect]
     Indication: MENORRHAGIA
     Dosage: UNK
     Route: 048
     Dates: start: 20020712, end: 20070807
  15. CEFDINIR [Concomitant]
     Dosage: 300 MG, UNK
     Dates: start: 20080924
  16. YASMIN [Suspect]
     Indication: MENORRHAGIA
     Dosage: UNK
     Dates: start: 20010101, end: 20080101
  17. XOPENEX [Concomitant]
  18. HUMULIN I [Concomitant]
  19. METFORMIN HYDROCHLORIDE [Concomitant]
     Indication: TYPE 2 DIABETES MELLITUS
     Route: 065
  20. AEROSOL [Concomitant]
     Indication: ASTHMA

REACTIONS (7)
  - CHEST DISCOMFORT [None]
  - PULMONARY EMBOLISM [None]
  - TACHYCARDIA [None]
  - WHEEZING [None]
  - CHEST PAIN [None]
  - DYSPNOEA [None]
  - MUSCULOSKELETAL PAIN [None]
